FAERS Safety Report 8218476-0 (Version None)
Quarter: 2012Q1

REPORT INFORMATION
  Report Type: 
  Country: None (occurrence: None)
  Receive Date: 20120319
  Receipt Date: 20120306
  Transmission Date: 20120608
  Serious: Yes (Hospitalization, Other)
  Sender: FDA-Public Use
  Company Number: ES-MILLENNIUM PHARMACEUTICALS, INC.-2012-01709

PATIENT

DRUGS (3)
  1. MELPHALAN HYDROCHLORIDE [Suspect]
     Indication: MULTIPLE MYELOMA
     Dosage: 11.4 MG, UNK
     Route: 048
     Dates: start: 20111115, end: 20120301
  2. PREDNISONE [Suspect]
     Indication: MULTIPLE MYELOMA
     Dosage: 101 MG, UNK
     Route: 048
     Dates: start: 20111115, end: 20120301
  3. VELCADE [Suspect]
     Indication: MULTIPLE MYELOMA
     Dosage: 1.69 MG, UNK
     Route: 042
     Dates: start: 20111115, end: 20120228

REACTIONS (1)
  - HAEMORRHAGE [None]
